FAERS Safety Report 14240682 (Version 1)
Quarter: 2017Q4

REPORT INFORMATION
  Report Type: Spontaneous
  Country: FR (occurrence: FR)
  Receive Date: 20171130
  Receipt Date: 20171130
  Transmission Date: 20180321
  Serious: Yes (Other)
  Sender: FDA-Public Use
  Company Number: FR-MYLANLABS-2017M1074527

PATIENT
  Age: 56 Year
  Sex: Female

DRUGS (1)
  1. TRAMADOL MYLAN GENERIQUES LP 100 MG, COMPRIM? ? LIB?RATION PROLONG?E [Suspect]
     Active Substance: TRAMADOL
     Indication: ARTHRALGIA
     Dosage: 100 MG, ONCE
     Route: 048
     Dates: start: 20171021

REACTIONS (3)
  - Somnolence [Recovering/Resolving]
  - Abdominal distension [Recovering/Resolving]
  - Vertigo [Recovering/Resolving]

NARRATIVE: CASE EVENT DATE: 20171022
